FAERS Safety Report 24728799 (Version 1)
Quarter: 2024Q4

REPORT INFORMATION
  Report Type: Spontaneous
  Country: CN (occurrence: CN)
  Receive Date: 20241212
  Receipt Date: 20241212
  Transmission Date: 20250114
  Serious: Yes (Other)
  Sender: BEIGENE
  Company Number: CN-BEIGENE-BGN-2024-019801

PATIENT

DRUGS (2)
  1. TISLELIZUMAB [Suspect]
     Active Substance: TISLELIZUMAB
     Indication: Rectal cancer
     Dosage: 200 MILLIGRAM
     Route: 041
     Dates: start: 20241028
  2. REGORAFENIB [Suspect]
     Active Substance: REGORAFENIB
     Indication: Targeted cancer therapy
     Dosage: 120 MILLIGRAM
     Route: 048
     Dates: start: 20241025, end: 20241025

REACTIONS (1)
  - Liver injury [Recovering/Resolving]

NARRATIVE: CASE EVENT DATE: 20241112
